FAERS Safety Report 4735076-5 (Version None)
Quarter: 2005Q3

REPORT INFORMATION
  Report Type: 
  Country: None (occurrence: None)
  Receive Date: 20050804
  Receipt Date: 20050719
  Transmission Date: 20060218
  Serious: Yes (Other)
  Sender: FDA-Public Use
  Company Number: US_0503113772

PATIENT
  Age: 31 Year
  Sex: Male
  Weight: 135 kg

DRUGS (3)
  1. ZYPREXA [Suspect]
     Indication: SCHIZOPHRENIA
     Dosage: 100 MG DAY
     Dates: start: 19960101, end: 20010101
  2. CLOZARIL [Concomitant]
  3. METFORMIN [Concomitant]

REACTIONS (6)
  - DIABETES MELLITUS [None]
  - DIABETIC COMA [None]
  - DIABETIC KETOACIDOSIS [None]
  - HYPOGLYCAEMIA [None]
  - OBESITY [None]
  - VISION BLURRED [None]
